FAERS Safety Report 16161943 (Version 3)
Quarter: 2020Q2

REPORT INFORMATION
  Report Type: Spontaneous
  Country: ES (occurrence: ES)
  Receive Date: 20190405
  Receipt Date: 20200627
  Transmission Date: 20200713
  Serious: Yes (Hospitalization)
  Sender: FDA-Public Use
  Company Number: ES-ACCORD-117895

PATIENT
  Age: 53 Year
  Sex: Female

DRUGS (2)
  1. METHOTREXATE. [Suspect]
     Active Substance: METHOTREXATE
     Indication: PRODUCT USED FOR UNKNOWN INDICATION
     Dosage: DOSE UNIT FREQUENCY: 15 MG-MILLIGRAMS,DOSE PER DOSE: 15 MG-MILLIGRAMS
     Route: 048
     Dates: start: 2013, end: 20151020
  2. ROACTEMRA [Suspect]
     Active Substance: TOCILIZUMAB
     Indication: POLYARTHRITIS
     Dosage: UNIT DOSE FREQ.: 162 MG,DOSE PER INTAKE: 162 MG,NO. SHOTS PER FREQ. UNIT: 1, FREQ. UNIT: 1 WEEK
     Route: 042
     Dates: start: 20150710, end: 20151020

REACTIONS (3)
  - Cerebellar infarction [Recovering/Resolving]
  - Cerebral infarction [Recovering/Resolving]
  - Reversible cerebral vasoconstriction syndrome [Recovering/Resolving]

NARRATIVE: CASE EVENT DATE: 20151020
